FAERS Safety Report 9739077 (Version 1)
Quarter: 2013Q4

REPORT INFORMATION
  Report Type: Spontaneous
  Country: CA (occurrence: CA)
  Receive Date: 20131209
  Receipt Date: 20131209
  Transmission Date: 20140711
  Serious: Yes (Other)
  Sender: FDA-Public Use
  Company Number: CA-NAPPMUNDI-CAN-2013-0004588

PATIENT
  Sex: Male

DRUGS (15)
  1. BUTRANS TRANSDERMAL PATCH - 10 MCG/HR [Suspect]
     Indication: PAIN
     Dosage: 10 MCG, Q1H
     Route: 062
     Dates: start: 201308
  2. BUTRANS TRANSDERMAL PATCH - 10 MCG/HR [Suspect]
     Dosage: 5 MCG, Q1H
     Route: 062
     Dates: start: 201307, end: 201308
  3. PREVACID [Suspect]
     Indication: GASTROINTESTINAL DISORDER
     Dosage: 30 MG, BID
     Route: 048
     Dates: end: 20131126
  4. RANITIDINE [Concomitant]
     Indication: GASTROINTESTINAL DISORDER
     Dosage: 300 MG, DAILY
     Route: 048
  5. BISOPROLOL [Concomitant]
     Indication: HYPERTENSION
     Dosage: 1.25 MG, DAILY
     Route: 048
  6. CLONAZEPAM [Concomitant]
     Indication: DEPRESSION
     Dosage: 0.25 MG, BID
     Route: 048
  7. LASIX                              /00032601/ [Concomitant]
     Indication: CARDIAC FAILURE CONGESTIVE
     Dosage: 40 MG, DAILY
     Route: 048
  8. SPIRONOLACTONE [Concomitant]
     Indication: CARDIAC FAILURE CONGESTIVE
     Dosage: 25 MG, DAILY
     Route: 048
  9. FLOMAX                             /00889901/ [Concomitant]
     Indication: URINARY RETENTION
     Dosage: 0.4 MG, DAILY
     Route: 048
  10. PROSCAR [Concomitant]
     Indication: URINARY RETENTION
     Dosage: 2.5 MG, DAILY
     Route: 048
  11. SYNTHROID [Concomitant]
     Indication: HYPOTHYROIDISM
     Dosage: 75 MG, DAILY
     Route: 048
  12. VITAMIN B12                        /00056201/ [Concomitant]
     Indication: SUPPLEMENTATION THERAPY
     Dosage: UNK MG, UNK
     Route: 048
  13. FOLIC ACID [Concomitant]
     Indication: SUPPLEMENTATION THERAPY
     Dosage: 5 MG, DAILY
     Route: 048
  14. CALCIUM [Concomitant]
     Indication: OSTEOPOROSIS
     Dosage: UNK
     Route: 048
  15. VITAMIN D                          /00107901/ [Concomitant]
     Indication: OSTEOPOROSIS
     Dosage: UNK
     Route: 048

REACTIONS (1)
  - Pancytopenia [Not Recovered/Not Resolved]
